FAERS Safety Report 5908388-7 (Version None)
Quarter: 2008Q4

REPORT INFORMATION
  Report Type: 
  Country: None (occurrence: None)
  Receive Date: 20081006
  Receipt Date: 20080930
  Transmission Date: 20090506
  Serious: Yes (Hospitalization)
  Sender: FDA-Public Use
  Company Number: US-ABBOTT-08P-163-0479274-00

PATIENT
  Sex: Female
  Weight: 75.364 kg

DRUGS (4)
  1. VICODIN [Suspect]
     Indication: PAIN
     Route: 048
  2. SU-011, 248 [Suspect]
     Indication: METASTATIC RENAL CELL CARCINOMA
     Route: 048
     Dates: start: 20050418
  3. AMLODIPINE [Concomitant]
     Indication: HYPERTENSION
     Route: 048
     Dates: start: 20050708
  4. OMEPRAZOLE MAGNESIUM [Concomitant]
     Indication: DYSPEPSIA
     Route: 048
     Dates: start: 20050822

REACTIONS (2)
  - ABDOMINAL PAIN [None]
  - CONSTIPATION [None]
